FAERS Safety Report 4349924-4 (Version None)
Quarter: 2004Q2

REPORT INFORMATION
  Report Type: 
  Country: None (occurrence: None)
  Receive Date: 20040428
  Receipt Date: 20040428
  Transmission Date: 20050107
  Serious: No
  Sender: FDA-Public Use
  Company Number: None

PATIENT
  Age: 79 Year
  Sex: Male
  Weight: 64.9 kg

DRUGS (8)
  1. LISINOPRIL [Suspect]
     Indication: HYPERTENSION
     Dosage: 10 MG EVERY DA ORAL
     Route: 048
     Dates: start: 20031022, end: 20040317
  2. DOCUSATE CALCIUM [Concomitant]
  3. MAGNESIUM HYDROXIDE TAB [Concomitant]
  4. CLOPIDOFREL BISULFATE [Concomitant]
  5. ALENDROMATE [Concomitant]
  6. ACETAMINOPHEN/OXYCODONE [Concomitant]
  7. CALCIUM/VITAMIN D [Concomitant]
  8. SOTALOL HCL [Concomitant]

REACTIONS (2)
  - ANGIONEUROTIC OEDEMA [None]
  - URTICARIA [None]
